FAERS Safety Report 13461050 (Version 1)
Quarter: 2017Q2

REPORT INFORMATION
  Report Type: Report from Study
  Country: CN (occurrence: CN)
  Receive Date: 20170420
  Receipt Date: 20170420
  Transmission Date: 20170830
  Serious: Yes (Other)
  Sender: FDA-Public Use
  Company Number: CN-ROCHE-1922841

PATIENT
  Sex: Male
  Weight: 51 kg

DRUGS (1)
  1. AVASTIN [Suspect]
     Active Substance: BEVACIZUMAB
     Indication: RECTAL CANCER
     Route: 041
     Dates: start: 20160816

REACTIONS (2)
  - Blood bilirubin increased [Recovering/Resolving]
  - Bile duct obstruction [Recovering/Resolving]
